FAERS Safety Report 25759898 (Version 1)
Quarter: 2025Q3

REPORT INFORMATION
  Report Type: Spontaneous
  Country: CN (occurrence: CN)
  Receive Date: 20250904
  Receipt Date: 20250904
  Transmission Date: 20251020
  Serious: Yes (Other)
  Sender: RANBAXY
  Company Number: CN-SUN PHARMACEUTICAL INDUSTRIES LTD-2025R1-525912

PATIENT
  Age: 41 Year
  Sex: Male
  Weight: 70 kg

DRUGS (5)
  1. METHYLPREDNISOLONE [Suspect]
     Active Substance: METHYLPREDNISOLONE
     Indication: Hyperammonaemic encephalopathy
     Dosage: 1 GRAM, QD
     Route: 065
  2. LACTULOSE [Suspect]
     Active Substance: LACTULOSE
     Indication: Hyperammonaemic encephalopathy
     Dosage: 15 MILLILITER, BID
     Route: 065
  3. DEXTROSE [Suspect]
     Active Substance: DEXTROSE MONOHYDRATE
     Indication: Hyperammonaemic encephalopathy
     Route: 065
  4. SMECTA [Suspect]
     Active Substance: MONTMORILLONITE
     Indication: Hyperammonaemic encephalopathy
     Dosage: 0.5 MILLIGRAM, QD
     Route: 065
  5. ARGININE [Suspect]
     Active Substance: ARGININE
     Indication: Hyperammonaemic encephalopathy
     Dosage: 5 GRAM, QD
     Route: 065

REACTIONS (1)
  - Condition aggravated [Unknown]
